FAERS Safety Report 12779403 (Version 1)
Quarter: 2016Q3

REPORT INFORMATION
  Report Type: Spontaneous
  Country: US (occurrence: US)
  Receive Date: 20160922
  Receipt Date: 20160922
  Transmission Date: 20161109
  Serious: Yes (Life-Threatening, Hospitalization)
  Sender: FDA-Public Use
  Company Number: None

PATIENT
  Age: 61 Year
  Sex: Male
  Weight: 69.1 kg

DRUGS (2)
  1. VENLAFAXINE [Suspect]
     Active Substance: VENLAFAXINE HYDROCHLORIDE
     Indication: INSOMNIA
     Route: 048
     Dates: start: 20111122, end: 20111208
  2. VENLAFAXINE [Suspect]
     Active Substance: VENLAFAXINE HYDROCHLORIDE
     Indication: POST-TRAUMATIC STRESS DISORDER
     Route: 048
     Dates: start: 20111122, end: 20111208

REACTIONS (4)
  - Feeling abnormal [None]
  - Dysuria [None]
  - Blood sodium decreased [None]
  - Inappropriate antidiuretic hormone secretion [None]

NARRATIVE: CASE EVENT DATE: 20111208
